FAERS Safety Report 8086067-0 (Version None)
Quarter: 2012Q1

REPORT INFORMATION
  Report Type: 
  Country: None (occurrence: None)
  Receive Date: 20120128
  Receipt Date: 20110614
  Transmission Date: 20120608
  Serious: No
  Sender: FDA-Public Use
  Company Number: US-ABBOTT-11P-163-0731639-00

PATIENT
  Sex: Female
  Weight: 77.18 kg

DRUGS (14)
  1. CYMBALTA [Concomitant]
     Indication: ANXIETY DISORDER
  2. LASIX [Concomitant]
     Indication: CARDIAC DISORDER
     Route: 048
  3. FLEXERIL [Concomitant]
     Indication: BACK INJURY
  4. MULTI-VITAMIN [Concomitant]
     Indication: VITAMIN SUPPLEMENTATION
     Route: 048
  5. LITHIUM CARBONATE [Concomitant]
     Indication: BIPOLAR DISORDER
  6. CYMBALTA [Concomitant]
     Indication: DEPRESSION
     Route: 048
  7. LEVOTHYROXINE SODIUM [Concomitant]
     Indication: HYPOTHYROIDISM
     Route: 048
  8. VITAMIN E [Concomitant]
     Indication: VITAMIN SUPPLEMENTATION
     Route: 048
  9. TRAMADOL HCL [Concomitant]
     Indication: BACK INJURY
  10. HUMIRA [Suspect]
     Indication: PSORIASIS
     Route: 058
     Dates: start: 20110425, end: 20110425
  11. HUMIRA [Suspect]
     Route: 058
     Dates: start: 20110508
  12. IBUPROFEN [Concomitant]
     Indication: PAIN
  13. RESTORIL [Concomitant]
     Indication: ANXIETY
     Dosage: AT NIGHT
     Route: 048
  14. METHOTREXATE [Concomitant]
     Indication: PSORIASIS

REACTIONS (4)
  - FEELING HOT [None]
  - INCORRECT DOSE ADMINISTERED [None]
  - DRUG INEFFECTIVE [None]
  - PRURITUS [None]
